FAERS Safety Report 8303892-9 (Version None)
Quarter: 2012Q2

REPORT INFORMATION
  Report Type: 
  Country: None (occurrence: None)
  Receive Date: 20120423
  Receipt Date: 20120417
  Transmission Date: 20120825
  Serious: Yes (Other)
  Sender: FDA-Public Use
  Company Number: PHEH2010US03876

PATIENT
  Sex: Male

DRUGS (55)
  1. ZOMETA [Suspect]
     Indication: METASTASES TO PROSTATE
  2. PROMETHAZINE [Concomitant]
  3. OXYCODONE HCL [Concomitant]
  4. HYDROCORTISONE [Concomitant]
  5. CARVEDILOL [Concomitant]
  6. WARFARIN SODIUM [Concomitant]
  7. REGELAN [Concomitant]
  8. CELEBREX [Concomitant]
     Dosage: 100 MG, UNK
  9. PROSCAR [Concomitant]
     Dosage: 5 MG, UNK
  10. TEMAZEPAM [Concomitant]
  11. NEOSPORIN [Concomitant]
  12. HEPARIN [Concomitant]
  13. CHEMOTHERAPEUTICS [Concomitant]
  14. SOMA [Concomitant]
  15. COUMADIN [Concomitant]
  16. ZOFRAN [Concomitant]
  17. ZOMETA [Suspect]
     Indication: METASTASES TO BONE
     Dosage: 4 MG, MONTHLY
     Dates: end: 20080528
  18. METHADONE HCL [Concomitant]
  19. ZOCOR [Concomitant]
  20. PRILOSEC [Concomitant]
  21. NEXIUM [Concomitant]
  22. HYTRIN [Concomitant]
  23. HYZAAR [Concomitant]
  24. MOTRIN [Concomitant]
     Dosage: 800 MG, UNK
  25. KANTREX [Concomitant]
  26. LEXAPRO [Concomitant]
  27. MISOPROSTOL [Concomitant]
  28. INDOCIN [Concomitant]
  29. SENOKOT [Concomitant]
  30. ANCEF [Concomitant]
  31. GENTAMICIN [Concomitant]
  32. PEPCID [Concomitant]
  33. EFFEXOR [Concomitant]
  34. ANTIVERT [Concomitant]
  35. PERCOCET [Concomitant]
  36. PROZAC [Concomitant]
     Dosage: 20 MG, UNK
  37. VIVELLE [Concomitant]
  38. LORAZEPAM [Concomitant]
     Dosage: 0.5 MG, UNK
  39. KETOCONAZOLE [Concomitant]
  40. ALLEGRA [Concomitant]
  41. ESTRADIOL [Concomitant]
     Dosage: 0.8 MG, UNK
  42. ZYVOX [Concomitant]
  43. VANCOMYCIN [Concomitant]
  44. INDIGO CARMINE [Concomitant]
  45. FLUNISOLIDE [Concomitant]
  46. SENNA [Concomitant]
  47. CYTOTEC [Concomitant]
  48. CYMBALTA [Concomitant]
  49. VERSED [Concomitant]
  50. AREDIA [Suspect]
     Indication: METASTASES TO PROSTATE
     Dosage: 90 MG, MONTHLY
  51. CLONAZEPAM [Concomitant]
  52. BACITRACIN [Concomitant]
  53. MARCAINE [Concomitant]
  54. METHADONE HCL [Concomitant]
  55. MORPHINE [Concomitant]

REACTIONS (54)
  - ORAL INFECTION [None]
  - DEFORMITY [None]
  - CELLULITIS [None]
  - SPINAL CORD COMPRESSION [None]
  - VENTRICULAR HYPERTROPHY [None]
  - AMNESIA [None]
  - OSTEOARTHRITIS [None]
  - LUMBOSACRAL PLEXUS LESION [None]
  - PAIN [None]
  - VISUAL IMPAIRMENT [None]
  - CEREBROVASCULAR ACCIDENT [None]
  - DIVERTICULUM [None]
  - ROTATOR CUFF SYNDROME [None]
  - BONE LOSS [None]
  - AGITATION [None]
  - OSTEOMYELITIS [None]
  - TRICUSPID VALVE INCOMPETENCE [None]
  - DIZZINESS [None]
  - HYPERLIPIDAEMIA [None]
  - BRACHIAL PLEXOPATHY [None]
  - METABOLIC ENCEPHALOPATHY [None]
  - DISABILITY [None]
  - HYPERTENSION [None]
  - HIP FRACTURE [None]
  - OTITIS MEDIA [None]
  - CATARACT [None]
  - CERVICOBRACHIAL SYNDROME [None]
  - ATRIAL FIBRILLATION [None]
  - PHIMOSIS [None]
  - ERYTHEMA [None]
  - LUMBAR RADICULOPATHY [None]
  - ANXIETY [None]
  - EXPOSED BONE IN JAW [None]
  - PAIN IN JAW [None]
  - TOOTHACHE [None]
  - PATHOLOGICAL FRACTURE [None]
  - SLEEP APNOEA SYNDROME [None]
  - HAEMORRHAGIC ANAEMIA [None]
  - ARTHRALGIA [None]
  - DYSPNOEA [None]
  - PAIN IN EXTREMITY [None]
  - ANHEDONIA [None]
  - NEURITIS [None]
  - TOBACCO ABUSE [None]
  - DENTAL CARIES [None]
  - BACK PAIN [None]
  - TOXIC ENCEPHALOPATHY [None]
  - PNEUMONIA [None]
  - OSTEONECROSIS OF JAW [None]
  - SWELLING [None]
  - NEUROPATHY PERIPHERAL [None]
  - MITRAL VALVE INCOMPETENCE [None]
  - CONFUSIONAL STATE [None]
  - URINARY RETENTION [None]
